FAERS Safety Report 20034935 (Version 1)
Quarter: 2021Q4

REPORT INFORMATION
  Report Type: Spontaneous
  Country: JP (occurrence: JP)
  Receive Date: 20211104
  Receipt Date: 20211104
  Transmission Date: 20220303
  Serious: Yes (Other)
  Sender: FDA-Public Use
  Company Number: JP-SLATE RUN PHARMACEUTICALS-21JP000751

PATIENT

DRUGS (6)
  1. VANCOMYCIN HYDROCHLORIDE [Suspect]
     Active Substance: VANCOMYCIN HYDROCHLORIDE
     Indication: Meningitis pneumococcal
     Dosage: 60 MILLIGRAM PER KILOGRAM, QD
  2. CEFOTAXIME [Suspect]
     Active Substance: CEFOTAXIME SODIUM
     Indication: Meningitis pneumococcal
     Dosage: UNK
  3. BETAMIPRON\PANIPENEM [Suspect]
     Active Substance: BETAMIPRON\PANIPENEM
     Indication: Brain abscess
     Dosage: UNK
  4. LEVOFLOXACIN [Suspect]
     Active Substance: LEVOFLOXACIN
     Indication: Meningitis pneumococcal
     Dosage: UNK
  5. LEVOFLOXACIN [Suspect]
     Active Substance: LEVOFLOXACIN
     Dosage: UNK
  6. CEFTRIAXONE [Concomitant]
     Active Substance: CEFTRIAXONE
     Indication: Meningitis pneumococcal
     Dosage: 300 MILLIGRAM PER KILOGRAM, QD

REACTIONS (7)
  - Subdural abscess [Recovering/Resolving]
  - Brain abscess [Recovering/Resolving]
  - Meningitis pneumococcal [Recovering/Resolving]
  - Treatment failure [Recovering/Resolving]
  - Ophthalmoplegia [Not Recovered/Not Resolved]
  - Hypoacusis [Not Recovered/Not Resolved]
  - Hypersensitivity [Unknown]
